FAERS Safety Report 9453505 (Version 1)
Quarter: 2013Q3

REPORT INFORMATION
  Report Type: Spontaneous
  Country: US (occurrence: None)
  Receive Date: 20130809
  Receipt Date: 20130809
  Transmission Date: 20140515
  Serious: Yes (Other)
  Sender: FDA-Public Use
  Company Number: None

PATIENT
  Age: 32 Year
  Sex: Female

DRUGS (1)
  1. EXTAVIA [Suspect]
     Indication: MULTIPLE SCLEROSIS
     Dosage: 0.25MG  QOD  SUBQ
     Route: 058
     Dates: start: 20100707, end: 20130703

REACTIONS (2)
  - Pregnancy [None]
  - Maternal exposure during pregnancy [None]
